FAERS Safety Report 19246133 (Version 2)
Quarter: 2021Q2

REPORT INFORMATION
  Report Type: Spontaneous
  Country: GB (occurrence: GB)
  Receive Date: 20210512
  Receipt Date: 20210606
  Transmission Date: 20210717
  Serious: Yes (Life-Threatening, Hospitalization, Other)
  Sender: FDA-Public Use
  Company Number: GB-LUPIN PHARMACEUTICALS INC.-2021-06751

PATIENT
  Age: 33 Year
  Sex: Male

DRUGS (3)
  1. MESALAZINE [Concomitant]
     Active Substance: MESALAMINE
     Indication: COLITIS ULCERATIVE
     Dosage: UNK
     Route: 065
  2. BUDESONIDE. [Suspect]
     Active Substance: BUDESONIDE
     Dosage: 9 MILLIGRAM, QD
     Route: 065
  3. BUDESONIDE. [Suspect]
     Active Substance: BUDESONIDE
     Indication: COLITIS ULCERATIVE
     Dosage: UNK
     Route: 065

REACTIONS (9)
  - Coagulopathy [Recovering/Resolving]
  - Sepsis [Recovered/Resolved]
  - Coma [Recovering/Resolving]
  - H1N1 influenza [Recovered/Resolved]
  - Adrenal haemorrhage [Recovered/Resolved]
  - Adrenal insufficiency [Recovering/Resolving]
  - Organ failure [Unknown]
  - Adrenocortical insufficiency acute [Unknown]
  - Pyelonephritis [Unknown]
